FAERS Safety Report 9193501 (Version 2)
Quarter: 2013Q2

REPORT INFORMATION
  Report Type: Spontaneous
  Country: US (occurrence: US)
  Receive Date: 20130327
  Receipt Date: 20130402
  Transmission Date: 20140414
  Serious: No
  Sender: FDA-Public Use
  Company Number: US-BAYER-2013-038380

PATIENT
  Age: 77 Year
  Sex: Female
  Weight: 77.1 kg

DRUGS (5)
  1. ALEVE CAPLET [Suspect]
     Dosage: 2 DF, BID
     Route: 048
     Dates: start: 2012
  2. PEPTO BISMOL [Concomitant]
  3. PRILOSEC [Concomitant]
  4. ANTACIDS [Concomitant]
  5. PHENERGAN [Concomitant]

REACTIONS (3)
  - Dyspepsia [Recovered/Resolved]
  - Nausea [Recovered/Resolved]
  - Overdose [None]
